FAERS Safety Report 6491974-6 (Version None)
Quarter: 2009Q4

REPORT INFORMATION
  Report Type: 
  Country: None (occurrence: None)
  Receive Date: 20091208
  Receipt Date: 20091128
  Transmission Date: 20100525
  Serious: Yes (Other)
  Sender: FDA-Public Use
  Company Number: 1-20852545

PATIENT
  Age: 64 Year
  Sex: Male

DRUGS (6)
  1. PREDNISOLONE [Suspect]
     Indication: GRAFT VERSUS HOST DISEASE
     Dosage: 2 MG/KG BODY WEIGHT, ORAL
     Route: 048
  2. CYCLOSPORINE [Suspect]
     Indication: IMMUNOSUPPRESSION
     Dosage: UNK, UNK, ORAL
     Route: 048
  3. MYCOPHENOLATE MOFETIL [Suspect]
     Indication: IMMUNOSUPPRESSION
     Dosage: UNK, UNK, ORAL
     Route: 048
  4. FLUDARABINE PHOSPHATE [Concomitant]
  5. CIPROFLOXACIN [Concomitant]
  6. VORICONAZOLE [Concomitant]

REACTIONS (6)
  - ACUTE GRAFT VERSUS HOST DISEASE IN INTESTINE [None]
  - ACUTE GRAFT VERSUS HOST DISEASE IN SKIN [None]
  - BRONCHOPULMONARY ASPERGILLOSIS [None]
  - COUGH [None]
  - PYREXIA [None]
  - WHITE BLOOD CELL COUNT DECREASED [None]
